FAERS Safety Report 19505749 (Version 2)
Quarter: 2021Q3

REPORT INFORMATION
  Report Type: Spontaneous
  Country: US (occurrence: US)
  Receive Date: 20210708
  Receipt Date: 20210802
  Transmission Date: 20211014
  Serious: No
  Sender: FDA-Public Use
  Company Number: US-AMGEN-USASP2021101860

PATIENT
  Sex: Female

DRUGS (2)
  1. REPATHA [Suspect]
     Active Substance: EVOLOCUMAB
     Indication: OFF LABEL USE
  2. REPATHA [Suspect]
     Active Substance: EVOLOCUMAB
     Indication: TYPE 2 DIABETES MELLITUS
     Dosage: 140 MILLIGRAM, Q2WK
     Route: 058
     Dates: start: 20190822

REACTIONS (2)
  - Product dose omission issue [Unknown]
  - Off label use [Unknown]
